FAERS Safety Report 12719599 (Version 2)
Quarter: 2016Q3

REPORT INFORMATION
  Report Type: Report from Study
  Country: BR (occurrence: BR)
  Receive Date: 20160907
  Receipt Date: 20160917
  Transmission Date: 20161109
  Serious: Yes (Death, Hospitalization)
  Sender: FDA-Public Use
  Company Number: PHHY2016BR122215

PATIENT
  Age: 84 Year
  Sex: Female

DRUGS (1)
  1. EXELON PATCH [Suspect]
     Active Substance: RIVASTIGMINE
     Indication: PARKINSON^S DISEASE
     Dosage: 1 DF, QD
     Route: 062

REACTIONS (6)
  - Retching [Unknown]
  - Sneezing [Unknown]
  - Death [Fatal]
  - Aspiration bronchial [Unknown]
  - Parkinson^s disease [Unknown]
  - Product use issue [Unknown]

NARRATIVE: CASE EVENT DATE: 20160909
